FAERS Safety Report 7439891-9 (Version None)
Quarter: 2011Q2

REPORT INFORMATION
  Report Type: 
  Country: None (occurrence: None)
  Receive Date: 20110427
  Receipt Date: 20110420
  Transmission Date: 20111010
  Serious: Yes (Other)
  Sender: FDA-Public Use
  Company Number: JP-ROXANE LABORATORIES, INC.-2011-RO-00545RO

PATIENT
  Age: 58 Year
  Sex: Male

DRUGS (2)
  1. DEXAMETHASONE [Suspect]
     Indication: MULTIPLE MYELOMA
  2. LENALIDOMIDE [Suspect]
     Indication: MULTIPLE MYELOMA

REACTIONS (4)
  - DRY SKIN [None]
  - INFLAMMATION [None]
  - HYPERTENSION [None]
  - DYSGEUSIA [None]
